FAERS Safety Report 10344983 (Version 3)
Quarter: 2014Q3

REPORT INFORMATION
  Report Type: Spontaneous
  Country: US (occurrence: None)
  Receive Date: 20140724
  Receipt Date: 20140911
  Transmission Date: 20150326
  Serious: Yes (Death)
  Sender: FDA-Public Use
  Company Number: US-001106

PATIENT
  Age: 63 Year
  Sex: Male

DRUGS (1)
  1. GATTEX [Suspect]
     Active Substance: TEDUGLUTIDE\WATER
     Indication: SHORT-BOWEL SYNDROME
     Route: 058
     Dates: start: 20140616

REACTIONS (2)
  - Death [None]
  - Gastrointestinal necrosis [None]

NARRATIVE: CASE EVENT DATE: 201407
